FAERS Safety Report 23631652 (Version 2)
Quarter: 2024Q4

REPORT INFORMATION
  Report Type: Spontaneous
  Country: CN (occurrence: CN)
  Receive Date: 20240314
  Receipt Date: 20241009
  Transmission Date: 20250115
  Serious: Yes (Life-Threatening, Hospitalization, Other)
  Sender: PFIZER
  Company Number: CN-PFIZER INC-202400061705

PATIENT
  Age: 47 Year
  Sex: Female

DRUGS (18)
  1. CYTARABINE [Suspect]
     Active Substance: CYTARABINE
     Indication: B-cell type acute leukaemia
     Dosage: UNK, 3 CYCLES OF CONSOLIDATION THERAPY
  2. CYTARABINE [Suspect]
     Active Substance: CYTARABINE
     Dosage: HIGH DOSE, CYCLIC
  3. CYTARABINE [Suspect]
     Active Substance: CYTARABINE
     Dosage: UNK, CYCLIC
     Dates: start: 20180830
  4. CYTARABINE [Suspect]
     Active Substance: CYTARABINE
     Dosage: UNK, CYCLIC
     Dates: start: 20181213
  5. METHOTREXATE SODIUM [Suspect]
     Active Substance: METHOTREXATE SODIUM
     Indication: B-cell type acute leukaemia
     Dosage: HIGH DOSE, CYCLIC
  6. IDARUBICIN HYDROCHLORIDE [Suspect]
     Active Substance: IDARUBICIN HYDROCHLORIDE
     Indication: B-cell type acute leukaemia
     Dosage: ONE COURSE, CYCLIC
  7. ACLARUBICIN [Suspect]
     Active Substance: ACLARUBICIN
     Indication: B-cell type acute leukaemia
     Dosage: UNK, 3 CYCLES OF CONSOLIDATION THERAPY
  8. ACLARUBICIN [Suspect]
     Active Substance: ACLARUBICIN
     Dosage: UNK, CYCLIC
     Dates: start: 20181213
  9. GRANULOCYTE COLONY-STIMULATING FACTOR NOS [Suspect]
     Active Substance: GRANULOCYTE COLONY-STIMULATING FACTOR NOS
     Indication: B-cell type acute leukaemia
     Dosage: 3 CYCLES, CYCLIC
  10. GRANULOCYTE COLONY-STIMULATING FACTOR NOS [Suspect]
     Active Substance: GRANULOCYTE COLONY-STIMULATING FACTOR NOS
     Dosage: UNK, CYCLIC
     Dates: start: 20180830
  11. GRANULOCYTE COLONY-STIMULATING FACTOR NOS [Suspect]
     Active Substance: GRANULOCYTE COLONY-STIMULATING FACTOR NOS
     Dosage: UNK
     Dates: start: 20181213
  12. ASPARAGINASE [Suspect]
     Active Substance: ASPARAGINASE
     Indication: B-cell type acute leukaemia
     Dosage: HIGH DOSE, CYCLIC
  13. CYCLOPHOSPHAMIDE [Suspect]
     Active Substance: CYCLOPHOSPHAMIDE
     Indication: B-cell type acute leukaemia
     Dosage: ONE COURSE, CYCLIC
  14. VINCRISTINE [Suspect]
     Active Substance: VINCRISTINE
     Indication: B-cell type acute leukaemia
     Dosage: ONE COURSE, CYCLIC
  15. LENALIDOMIDE [Suspect]
     Active Substance: LENALIDOMIDE
     Indication: B-cell type acute leukaemia
     Dosage: 2 COURSES, CYCLIC
     Dates: start: 20181122
  16. DECITABINE [Suspect]
     Active Substance: DECITABINE
     Indication: B-cell type acute leukaemia
     Dosage: UNK, CYCLIC
     Dates: start: 20180830
  17. OMACETAXINE MEPESUCCINATE [Suspect]
     Active Substance: OMACETAXINE MEPESUCCINATE
     Indication: B-cell type acute leukaemia
     Dosage: UNK, CYCLIC
     Dates: start: 20180830
  18. DEXAMETHASONE [Concomitant]
     Active Substance: DEXAMETHASONE
     Indication: B-cell type acute leukaemia

REACTIONS (2)
  - Second primary malignancy [Recovered/Resolved]
  - Acute myeloid leukaemia [Recovered/Resolved]
